FAERS Safety Report 4584015-9 (Version None)
Quarter: 2005Q1

REPORT INFORMATION
  Report Type: 
  Country: None (occurrence: None)
  Receive Date: 20050125
  Receipt Date: 20041018
  Transmission Date: 20050727
  Serious: No
  Sender: FDA-Public Use
  Company Number: USA041080174

PATIENT
  Age: 68 Year
  Sex: Female

DRUGS (3)
  1. FORTEO [Suspect]
     Indication: OSTEOPOROSIS
     Dates: start: 20040929, end: 20041014
  2. EVISTA [Suspect]
     Dates: start: 20010101, end: 20030101
  3. CALCIUM WITH VITAMIN D [Concomitant]

REACTIONS (18)
  - ANXIETY [None]
  - ARTHRALGIA [None]
  - BONE PAIN [None]
  - DIFFICULTY IN WALKING [None]
  - DRY MOUTH [None]
  - FEELING ABNORMAL [None]
  - HEADACHE [None]
  - IRRITABILITY [None]
  - KERATOCONJUNCTIVITIS SICCA [None]
  - LOGORRHOEA [None]
  - MUSCLE SPASMS [None]
  - NASAL DRYNESS [None]
  - NERVOUSNESS [None]
  - PAIN [None]
  - PAIN IN JAW [None]
  - RESTLESS LEGS SYNDROME [None]
  - SWELLING FACE [None]
  - TINNITUS [None]
